FAERS Safety Report 5900731-8 (Version None)
Quarter: 2008Q3

REPORT INFORMATION
  Report Type: 
  Country: None (occurrence: None)
  Receive Date: 20080928
  Receipt Date: 20080917
  Transmission Date: 20090109
  Serious: Yes (Hospitalization)
  Sender: FDA-Public Use
  Company Number: US-BAYER-200833766NA

PATIENT
  Age: 60 Year
  Sex: Male
  Weight: 104 kg

DRUGS (2)
  1. MAGNEVIST [Suspect]
     Indication: ANGIOGRAM
     Route: 042
     Dates: start: 20080801, end: 20080801
  2. ADVAIR DISKUS 100/50 [Concomitant]

REACTIONS (4)
  - FEELING HOT [None]
  - LOCAL SWELLING [None]
  - OEDEMA [None]
  - SWELLING [None]
